FAERS Safety Report 14587766 (Version 2)
Quarter: 2018Q1

REPORT INFORMATION
  Report Type: Spontaneous
  Country: US (occurrence: US)
  Receive Date: 20180301
  Receipt Date: 20180301
  Transmission Date: 20180509
  Serious: No
  Sender: FDA-Public Use
  Company Number: PHEH2018US007873

PATIENT
  Sex: Female

DRUGS (2)
  1. PREDNISOLONE ACETATE. [Suspect]
     Active Substance: PREDNISOLONE ACETATE
     Indication: INTRAOCULAR LENS IMPLANT
     Dosage: UNK
     Route: 065
     Dates: end: 201801
  2. OFLOXACIN. [Suspect]
     Active Substance: OFLOXACIN
     Indication: INTRAOCULAR LENS IMPLANT
     Dosage: UNK
     Route: 065
     Dates: end: 201801

REACTIONS (2)
  - Nausea [Unknown]
  - Dizziness [Unknown]
